FAERS Safety Report 4998096-1 (Version None)
Quarter: 2006Q2

REPORT INFORMATION
  Report Type: 
  Country: None (occurrence: None)
  Receive Date: 20060510
  Receipt Date: 20050913
  Transmission Date: 20061013
  Serious: Yes (Hospitalization, Other)
  Sender: FDA-Public Use
  Company Number: US-MERCK-0509USA01814

PATIENT
  Age: 68 Year
  Sex: Female
  Weight: 66 kg

DRUGS (14)
  1. VIOXX [Suspect]
     Indication: ARTHRITIS
     Route: 048
     Dates: start: 19991001, end: 20040901
  2. TOPROL-XL [Concomitant]
     Route: 048
  3. LOTREL [Concomitant]
     Route: 048
  4. LIPITOR [Concomitant]
     Route: 048
  5. ASPIRIN [Concomitant]
     Route: 048
  6. PREMARIN [Concomitant]
     Route: 048
  7. DETROL [Concomitant]
     Route: 048
  8. ZYRTEC [Concomitant]
     Route: 048
  9. EFFEXOR [Concomitant]
     Route: 048
  10. CALCIUM (UNSPECIFIED) AND VITAMIN D (UNSPECIFIED) [Concomitant]
     Route: 048
  11. VITAMIN E [Concomitant]
     Route: 048
  12. VITAMINS (UNSPECIFIED) [Concomitant]
     Route: 048
  13. HISTINEX D [Concomitant]
     Route: 048
  14. LEVAQUIN [Concomitant]
     Route: 048

REACTIONS (11)
  - AORTIC ANEURYSM [None]
  - CEREBROVASCULAR ACCIDENT [None]
  - CHEST PAIN [None]
  - CHRONIC OBSTRUCTIVE PULMONARY DISEASE [None]
  - CORONARY ARTERY DISEASE [None]
  - HYPERLIPIDAEMIA [None]
  - INFLUENZA [None]
  - MUSCULAR WEAKNESS [None]
  - PAIN IN EXTREMITY [None]
  - PNEUMONIA [None]
  - PULMONARY FIBROSIS [None]
